FAERS Safety Report 16777748 (Version 1)
Quarter: 2019Q3

REPORT INFORMATION
  Report Type: Spontaneous
  Country: DE (occurrence: DE)
  Receive Date: 20190905
  Receipt Date: 20190905
  Transmission Date: 20191005
  Serious: Yes (Death, Life-Threatening, Disabling, Other)
  Sender: FDA-Public Use
  Company Number: PHHY2019DE204734

PATIENT
  Age: 68 Year
  Sex: Male
  Weight: 70 kg

DRUGS (3)
  1. ASPIRIN. [Suspect]
     Active Substance: ASPIRIN
     Indication: CEREBROVASCULAR ACCIDENT PROPHYLAXIS
     Dosage: 100 MG, QD
     Route: 048
     Dates: start: 1997
  2. ASPIRIN. [Suspect]
     Active Substance: ASPIRIN
     Indication: VASCULAR GRAFT
  3. ASPIRIN. [Suspect]
     Active Substance: ASPIRIN
     Indication: ISCHAEMIC HEART DISEASE PROPHYLAXIS

REACTIONS (21)
  - Contusion [Unknown]
  - Muscle spasticity [Unknown]
  - Gait disturbance [Unknown]
  - Cerebrovascular accident [Fatal]
  - Muscle spasms [Unknown]
  - Dyspnoea [Unknown]
  - Bladder cancer [Unknown]
  - Brain injury [Unknown]
  - Eating disorder [Unknown]
  - Renal injury [Unknown]
  - Hemiparesis [Unknown]
  - Vertigo [Unknown]
  - Headache [Unknown]
  - Cerebrovascular accident [Unknown]
  - Balance disorder [Unknown]
  - Language disorder [Unknown]
  - Haematoma [Unknown]
  - Spinal cord injury [Unknown]
  - Ophthalmoplegia [Unknown]
  - Diplopia [Unknown]
  - Cardiovascular disorder [Unknown]

NARRATIVE: CASE EVENT DATE: 2016
